FAERS Safety Report 4280700-7 (Version None)
Quarter: 2004Q1

REPORT INFORMATION
  Report Type: 
  Country: None (occurrence: None)
  Receive Date: 20040127
  Receipt Date: 20040123
  Transmission Date: 20041129
  Serious: Yes (Other)
  Sender: FDA-Public Use
  Company Number: 2004195544US

PATIENT
  Age: 51 Year
  Sex: Female

DRUGS (4)
  1. CALAN [Suspect]
     Dosage: 240 MG, 60 CAPLETS ONCE; ORAL
     Route: 048
  2. PROZAC [Suspect]
     Dosage: 20 MG, 35 CAPSULES ONCE; ORAL
     Route: 048
  3. CALAN [Concomitant]
  4. PROZAC [Concomitant]

REACTIONS (6)
  - BRADYCARDIA [None]
  - HYPERTENSION [None]
  - INTENTIONAL OVERDOSE [None]
  - PYREXIA [None]
  - SUICIDE ATTEMPT [None]
  - TACHYCARDIA [None]
